FAERS Safety Report 23123486 (Version 4)
Quarter: 2024Q1

REPORT INFORMATION
  Report Type: Spontaneous
  Country: MX (occurrence: MX)
  Receive Date: 20231030
  Receipt Date: 20240301
  Transmission Date: 20240409
  Serious: Yes (Other)
  Sender: FDA-Public Use
  Company Number: MX-ORGANON-O2310MEX003277

PATIENT
  Age: 32 Year
  Sex: Female

DRUGS (1)
  1. ETONOGESTREL [Suspect]
     Active Substance: ETONOGESTREL
     Dosage: 1 IMPLANT, HAD BEEN USING THE IMPLANT FOR A YEAR
     Route: 059
     Dates: start: 20221208

REACTIONS (12)
  - Pregnancy with implant contraceptive [Recovered/Resolved]
  - Abortion induced [Recovered/Resolved]
  - Tissue injury [Unknown]
  - Unintended pregnancy [Recovered/Resolved]
  - Pain [Recovered/Resolved]
  - Intermenstrual bleeding [Recovered/Resolved]
  - Amenorrhoea [Recovered/Resolved]
  - Vaginal haemorrhage [Recovered/Resolved]
  - Menstruation delayed [Unknown]
  - Abdominal pain [Recovered/Resolved]
  - General physical health deterioration [Unknown]
  - Muscle spasms [Recovered/Resolved]

NARRATIVE: CASE EVENT DATE: 20230101
